FAERS Safety Report 5431459-9 (Version None)
Quarter: 2007Q3

REPORT INFORMATION
  Report Type: 
  Country: None (occurrence: None)
  Receive Date: 20070830
  Receipt Date: 20070706
  Transmission Date: 20080115
  Serious: No
  Sender: FDA-Public Use
  Company Number: A0660256A

PATIENT
  Age: 43 Year
  Sex: Female

DRUGS (4)
  1. WELLBUTRIN XL [Suspect]
     Dosage: 300MG PER DAY
     Route: 048
     Dates: start: 20061201
  2. ZOLOFT [Concomitant]
  3. AMBIEN [Concomitant]
  4. BUSPAR [Concomitant]

REACTIONS (1)
  - INCREASED TENDENCY TO BRUISE [None]
